FAERS Safety Report 11071578 (Version 1)
Quarter: 2015Q2

REPORT INFORMATION
  Report Type: Report from Study
  Country: US (occurrence: US)
  Receive Date: 20150428
  Receipt Date: 20150428
  Transmission Date: 20150821
  Serious: Yes (Other)
  Sender: FDA-Public Use
  Company Number: US-AMGEN-USASL2015040180

PATIENT
  Age: 50 Year
  Sex: Female

DRUGS (1)
  1. ENBREL [Suspect]
     Active Substance: ETANERCEPT
     Indication: RHEUMATOID ARTHRITIS
     Dosage: UNK
     Route: 065
     Dates: start: 20110101

REACTIONS (4)
  - Bipolar disorder [Not Recovered/Not Resolved]
  - Depression [Not Recovered/Not Resolved]
  - Hand deformity [Not Recovered/Not Resolved]
  - Agoraphobia [Not Recovered/Not Resolved]
